FAERS Safety Report 6960211-8 (Version None)
Quarter: 2010Q3

REPORT INFORMATION
  Report Type: 
  Country: None (occurrence: None)
  Receive Date: 20100901
  Receipt Date: 20100823
  Transmission Date: 20110219
  Serious: Yes (Other)
  Sender: FDA-Public Use
  Company Number: TR-ASTRAZENECA-2010SE39704

PATIENT
  Age: 6 Year
  Sex: Female

DRUGS (7)
  1. MEROPENEM [Suspect]
     Indication: PYREXIA
     Route: 042
  2. VANCOMYCIN [Suspect]
     Indication: PYREXIA
  3. AMIKACIN [Suspect]
  4. CASPOFUNGIN [Suspect]
  5. METRONIDAZOLE [Suspect]
  6. CHEMOTHERAPY [Suspect]
     Indication: LEUKAEMIA RECURRENT
  7. CEFEPIME [Suspect]

REACTIONS (1)
  - CORYNEBACTERIUM INFECTION [None]
